FAERS Safety Report 24287377 (Version 1)
Quarter: 2024Q3

REPORT INFORMATION
  Report Type: Spontaneous
  Country: US (occurrence: None)
  Receive Date: 20240904
  Receipt Date: 20240904
  Transmission Date: 20241016
  Serious: Yes (Other)
  Sender: Public
  Company Number: None

PATIENT
  Age: 79 Year
  Sex: Female
  Weight: 71.1 kg

DRUGS (5)
  1. REVLIMID [Suspect]
     Active Substance: LENALIDOMIDE
     Indication: Plasma cell myeloma
     Dosage: OTHER FREQUENCY : 21 D ON / 7 D OFF;?
     Route: 048
     Dates: start: 20221122
  2. DEXAMETHASONE [Concomitant]
     Active Substance: DEXAMETHASONE
     Dates: start: 20210506
  3. DOXEPIN [Concomitant]
     Active Substance: DOXEPIN
     Dates: start: 20220505
  4. ONDANSETRON [Concomitant]
     Active Substance: ONDANSETRON
     Dates: start: 20220602
  5. TRAMADOL [Concomitant]
     Active Substance: TRAMADOL\TRAMADOL HYDROCHLORIDE
     Dates: start: 20231012

REACTIONS (4)
  - Psoriasis [None]
  - Venous thrombosis limb [None]
  - Peripheral vein occlusion [None]
  - Superficial vein thrombosis [None]

NARRATIVE: CASE EVENT DATE: 20240718
